FAERS Safety Report 11472002 (Version 1)
Quarter: 2015Q3

REPORT INFORMATION
  Report Type: Report from Study
  Country: NZ (occurrence: NZ)
  Receive Date: 20150908
  Receipt Date: 20150908
  Transmission Date: 20151125
  Serious: Yes (Hospitalization, Other)
  Sender: FDA-Public Use
  Company Number: NZ-ASTRAZENECA-2015SE83999

PATIENT
  Sex: Male

DRUGS (1)
  1. BRILINTA [Suspect]
     Active Substance: TICAGRELOR
     Route: 048
     Dates: start: 20141212, end: 20150824

REACTIONS (6)
  - Arrhythmia [Unknown]
  - Cardiac disorder [Recovered/Resolved]
  - Stress [Recovered/Resolved]
  - Depression [Recovered/Resolved]
  - Myocardial infarction [Unknown]
  - Cold sweat [Recovered/Resolved]
